FAERS Safety Report 4879602-4 (Version None)
Quarter: 2006Q1

REPORT INFORMATION
  Report Type: 
  Country: None (occurrence: None)
  Receive Date: 20060113
  Receipt Date: 20050810
  Transmission Date: 20060701
  Serious: No
  Sender: FDA-Public Use
  Company Number: US-BRISTOL-MYERS SQUIBB COMPANY-13070685

PATIENT
  Age: 69 Year
  Sex: Female
  Weight: 62 kg

DRUGS (10)
  1. CISPLATIN [Suspect]
     Indication: CERVIX CARCINOMA
     Route: 042
     Dates: start: 20040101
  2. TAXOL [Suspect]
     Indication: CERVIX CARCINOMA
     Dates: start: 20050601
  3. NAVELBINE [Concomitant]
     Indication: CERVIX CARCINOMA
     Route: 042
  4. LIPITOR [Concomitant]
  5. DYAZIDE [Concomitant]
  6. ALEVE [Concomitant]
  7. NEXIUM [Concomitant]
  8. ZANTAC [Concomitant]
  9. NEURONTIN [Concomitant]
  10. BENADRYL [Concomitant]
     Indication: PREMEDICATION
     Route: 042

REACTIONS (5)
  - ANOREXIA [None]
  - CONSTIPATION [None]
  - COUGH [None]
  - FATIGUE [None]
  - SLUGGISHNESS [None]
